FAERS Safety Report 8540357 (Version 3)
Quarter: 2012Q4

REPORT INFORMATION
  Report Type: 
  Country: JP (occurrence: JP)
  Receive Date: 20120502
  Receipt Date: 20121017
  Transmission Date: 20130627
  Serious: Yes (Other)
  Sender: FDA-Public Use
  Company Number: PHHY2012JP036550

PATIENT
  Age: 68 Year
  Sex: Male

DRUGS (2)
  1. NEORAL [Suspect]
     Indication: NEPHROTIC SYNDROME
     Route: 048
  2. PREDNISOLONE [Suspect]
     Indication: NEPHROTIC SYNDROME
     Dosage: 20 mg, daily
     Route: 048

REACTIONS (3)
  - Interstitial lung disease [Recovering/Resolving]
  - Pneumonia cytomegaloviral [Recovering/Resolving]
  - Pneumocystis jiroveci pneumonia [Recovering/Resolving]
